FAERS Safety Report 7724645-6 (Version None)
Quarter: 2011Q3

REPORT INFORMATION
  Report Type: 
  Country: None (occurrence: None)
  Receive Date: 20110901
  Receipt Date: 20110823
  Transmission Date: 20111222
  Serious: Yes (Other)
  Sender: FDA-Public Use
  Company Number: CN-ASTRAZENECA-2011SE50356

PATIENT

DRUGS (2)
  1. ROPIVACAINE HYDROCHLORIDE [Suspect]
     Indication: SPINAL ANAESTHESIA
     Route: 037
  2. FENTANYL [Suspect]
     Indication: SPINAL ANAESTHESIA
     Dosage: TOTAL OF 3.5 ML WITH ROPIVACAINE
     Route: 037

REACTIONS (1)
  - OXYGEN SATURATION DECREASED [None]
